FAERS Safety Report 6162355 (Version 2)
Quarter: 2014Q2

REPORT INFORMATION
  Report Type: Spontaneous
  Country: US (occurrence: US)
  Receive Date: 20060731
  Receipt Date: 20140510
  Transmission Date: 20141212
  Serious: No
  Sender: FDA-Public Use
  Company Number: 2006PV011608

PATIENT
  Age: 64 Year
  Sex: Male
  Weight: 92.97 kg

DRUGS (3)
  1. BYETTA PEN DISPOSABLE [Suspect]
     Indication: TYPE 2 DIABETES MELLITUS
     Dosage: C126030A,EXP:FEB2015
     Route: 058
     Dates: start: 20060404
  2. ACTOS [Suspect]
  3. METFORMIN [Concomitant]

REACTIONS (2)
  - Injection site bruising [Unknown]
  - Peripheral swelling [Unknown]
